FAERS Safety Report 6276427-2 (Version None)
Quarter: 2009Q3

REPORT INFORMATION
  Report Type: 
  Country: None (occurrence: None)
  Receive Date: 20090720
  Receipt Date: 20090713
  Transmission Date: 20100115
  Serious: Yes (Death, Hospitalization)
  Sender: FDA-Public Use
  Company Number: CAP09000166

PATIENT
  Age: 86 Year
  Sex: Female

DRUGS (3)
  1. ACTONEL [Suspect]
     Indication: OSTEOPOROSIS
     Dosage: 35 MG ONCE WEEKLY, ORAL
     Route: 048
     Dates: start: 19990101, end: 20080606
  2. CALCIUM (CALCIUM) [Concomitant]
  3. ERGOCALCIFEROL [Concomitant]

REACTIONS (2)
  - OVARIAN CANCER [None]
  - OVARIAN CYST [None]
